FAERS Safety Report 20540832 (Version 2)
Quarter: 2022Q1

REPORT INFORMATION
  Report Type: Spontaneous
  Country: JP (occurrence: JP)
  Receive Date: 20220302
  Receipt Date: 20220330
  Transmission Date: 20220423
  Serious: No
  Sender: FDA-Public Use
  Company Number: JP-Eisai-202112201_LEN-TMC_P_1

PATIENT

DRUGS (2)
  1. LENVIMA [Suspect]
     Active Substance: LENVATINIB
     Indication: Malignant neoplasm of thymus
     Route: 048
     Dates: start: 20220216, end: 20220220
  2. LENVIMA [Suspect]
     Active Substance: LENVATINIB
     Route: 048
     Dates: start: 20220228

REACTIONS (1)
  - Decreased appetite [Recovered/Resolved]

NARRATIVE: CASE EVENT DATE: 20220220
